FAERS Safety Report 14604885 (Version 3)
Quarter: 2018Q2

REPORT INFORMATION
  Report Type: Spontaneous
  Country: US (occurrence: US)
  Receive Date: 20180306
  Receipt Date: 20180518
  Transmission Date: 20180711
  Serious: No
  Sender: FDA-Public Use
  Company Number: US-PFIZER INC-2018087767

PATIENT

DRUGS (1)
  1. SODIUM BICARBONATE. [Suspect]
     Active Substance: SODIUM BICARBONATE
     Dosage: 50 ML, UNK (50ML/VL ) (8.4% USP 2ML)

REACTIONS (3)
  - Oral disorder [Unknown]
  - Lip disorder [Unknown]
  - Nasal disorder [Unknown]
